FAERS Safety Report 9543810 (Version 2)
Quarter: 2014Q1

REPORT INFORMATION
  Report Type: Spontaneous
  Country: US (occurrence: None)
  Receive Date: 20130524
  Receipt Date: 20130724
  Transmission Date: 20141002
  Serious: No
  Sender: FDA-Public Use
  Company Number: PHEH2013US004457

PATIENT
  Age: 46 Year
  Sex: Female
  Weight: 103 kg

DRUGS (6)
  1. GILENYA (FINGOLIMOD) CAPSULE, 0.5MG [Suspect]
     Indication: MULTIPLE SCLEROSIS
     Route: 048
     Dates: start: 20130220
  2. PROVIGIL (MODAFINIL) [Concomitant]
  3. LEXAPRO (ESCITALOPRAM OXALATE) [Concomitant]
  4. ACEPHEN (MECLOFENOXATE HYDROCHLORIDE [Concomitant]
  5. ESTRADIOL (ESTRADIOL) (GEL) [Concomitant]
  6. FENOFIBRATE (FENOFIBRATE) [Concomitant]

REACTIONS (3)
  - Muscle spasms [None]
  - Dizziness [None]
  - Paraesthesia [None]
